FAERS Safety Report 16783337 (Version 2)
Quarter: 2019Q3

REPORT INFORMATION
  Report Type: Spontaneous
  Country: US (occurrence: US)
  Receive Date: 20190907
  Receipt Date: 20190917
  Transmission Date: 20191005
  Serious: No
  Sender: FDA-Public Use
  Company Number: US-SHIRE-US201929295

PATIENT
  Sex: Male

DRUGS (2)
  1. NATPARA (PARATHYROID HORMONE) [Suspect]
     Active Substance: PARATHYROID HORMONE
     Indication: HYPOPARATHYROIDISM
     Dosage: 50 MICROGRAM, 1X/DAY:QD
     Route: 058
     Dates: start: 20180924
  2. NATPARA (PARATHYROID HORMONE) [Suspect]
     Active Substance: PARATHYROID HORMONE
     Dosage: 75 MICROGRAM, 1X/DAY:QD
     Route: 058
     Dates: end: 20190906

REACTIONS (3)
  - Paraesthesia [Unknown]
  - Muscle spasms [Unknown]
  - Blood calcium decreased [Recovering/Resolving]
